FAERS Safety Report 18620871 (Version 4)
Quarter: 2021Q1

REPORT INFORMATION
  Report Type: Spontaneous
  Country: US (occurrence: US)
  Receive Date: 20201215
  Receipt Date: 20210322
  Transmission Date: 20210419
  Serious: Yes (Hospitalization)
  Sender: FDA-Public Use
  Company Number: US-SK LIFE SCIENCE, INC-SKPVG-2020-000748

PATIENT

DRUGS (12)
  1. XCOPRI [Suspect]
     Active Substance: CENOBAMATE
     Dosage: 100 MILLIGRAM, QD, IN THE MORNING (50/100 MGPACK) 1 IN THE AM , 100 MG HALF IN AM AND HALF IN THE PM
     Route: 048
     Dates: start: 20210124
  2. NEXIUM [Suspect]
     Active Substance: ESOMEPRAZOLE MAGNESIUM
     Indication: PRODUCT USED FOR UNKNOWN INDICATION
     Dosage: 20 MG TABLET 2 IN THE AM.
     Route: 065
  3. CYMBALTA [Suspect]
     Active Substance: DULOXETINE HYDROCHLORIDE
     Indication: PRODUCT USED FOR UNKNOWN INDICATION
     Dosage: ) 60 MG TABLET ONE IN THE AM AND ONE IN THE PM
     Route: 065
  4. TRAZODONE [Suspect]
     Active Substance: TRAZODONE HYDROCHLORIDE
     Indication: SLEEP DISORDER
     Dosage: 150 MG TABLET ONE TABLET BY MOUTH AT BEDTIME PRN
     Route: 048
  5. XCOPRI [Suspect]
     Active Substance: CENOBAMATE
     Dosage: 150 MILLIGRAM, QD, IN THE MORNING
     Route: 048
     Dates: start: 20201228
  6. VIMPAT [Suspect]
     Active Substance: LACOSAMIDE
     Indication: PRODUCT USED FOR UNKNOWN INDICATION
     Dosage: 50 MG TABLET (5 TABLETS BY MOUTH BID AS DIRECTED BY PHYSICIAN
     Route: 048
  7. LYRICA [Suspect]
     Active Substance: PREGABALIN
     Indication: PRODUCT USED FOR UNKNOWN INDICATION
     Dosage: 300 MG ONE TABLET BID
     Route: 065
  8. XCOPRI [Suspect]
     Active Substance: CENOBAMATE
     Indication: EPILEPSY
     Dosage: 100 MILLIGRAM, QD, IN THE MORNING (50/100 MGPACK)
     Route: 048
  9. XCOPRI [Suspect]
     Active Substance: CENOBAMATE
     Indication: SEIZURE
     Dosage: 25 MILLIGRAM, QD, IN THE MORNING
     Route: 048
     Dates: start: 20201107
  10. XCOPRI [Suspect]
     Active Substance: CENOBAMATE
     Dosage: 150 MILLIGRAM CUT IN HALF, QD, 150MG/200MG TITRATION PACK
     Route: 048
  11. LORAZEPAM. [Suspect]
     Active Substance: LORAZEPAM
     Indication: PRODUCT USED FOR UNKNOWN INDICATION
     Route: 065
  12. LAMICTAL [Suspect]
     Active Substance: LAMOTRIGINE
     Indication: PRODUCT USED FOR UNKNOWN INDICATION
     Dosage: 200 MG TABLET ONE TABLET BY MOUTH BID
     Route: 048

REACTIONS (15)
  - Fall [Not Recovered/Not Resolved]
  - Feeling abnormal [Unknown]
  - Loss of personal independence in daily activities [Not Recovered/Not Resolved]
  - Wrong technique in product usage process [Not Recovered/Not Resolved]
  - Vertigo [Not Recovered/Not Resolved]
  - Seizure [Not Recovered/Not Resolved]
  - Feeling hot [Not Recovered/Not Resolved]
  - Head banging [Unknown]
  - Moaning [Not Recovered/Not Resolved]
  - Gait disturbance [Unknown]
  - Feeling drunk [Unknown]
  - Osteoporosis [Not Recovered/Not Resolved]
  - Product dose omission issue [Recovered/Resolved]
  - Loss of consciousness [Not Recovered/Not Resolved]
  - Head injury [Unknown]

NARRATIVE: CASE EVENT DATE: 2020
